FAERS Safety Report 16398318 (Version 2)
Quarter: 2019Q2

REPORT INFORMATION
  Report Type: Spontaneous
  Country: SK (occurrence: SK)
  Receive Date: 20190606
  Receipt Date: 20190611
  Transmission Date: 20190711
  Serious: Yes (Hospitalization)
  Sender: FDA-Public Use
  Company Number: SK-PFIZER INC-2019240310

PATIENT
  Age: 39 Year
  Sex: Female

DRUGS (6)
  1. TRITACE [Suspect]
     Active Substance: RAMIPRIL
     Indication: MYOCARDIAL ISCHAEMIA
     Dosage: 12.5 MG, (1-0-0),DAILY
     Route: 048
     Dates: start: 20181209
  2. ATORVASTATIN CALCIUM. [Suspect]
     Active Substance: ATORVASTATIN CALCIUM
     Indication: MYOCARDIAL ISCHAEMIA
     Dosage: 80 MG, 0-0-1,DAILY
     Route: 048
     Dates: start: 20181209
  3. ANOPYRIN [Suspect]
     Active Substance: ASPIRIN
     Indication: MYOCARDIAL ISCHAEMIA
     Dosage: 100 MG (1-0-0),DAILY
     Route: 048
     Dates: start: 20181209
  4. EUTHYROX [Concomitant]
     Active Substance: LEVOTHYROXINE SODIUM
     Indication: HYPOTHYROIDISM
     Dosage: 75 UG,(1-0-0), DAILY, LONG-TERM
     Route: 048
  5. EFIENT [Suspect]
     Active Substance: PRASUGREL HYDROCHLORIDE
     Indication: MYOCARDIAL ISCHAEMIA
     Dosage: 10 MG, (1-0-0),DAILY
     Route: 048
     Dates: start: 20181209
  6. ATENOBENE [Suspect]
     Active Substance: ATENOLOL
     Indication: MYOCARDIAL ISCHAEMIA
     Dosage: 75 MG DAILY MORNING DOSE 50 MG, EVENING DOSE 25 MG
     Route: 048
     Dates: start: 20181209

REACTIONS (2)
  - Pruritus [Recovered/Resolved]
  - Rash maculo-papular [Recovered/Resolved]

NARRATIVE: CASE EVENT DATE: 20181213
